FAERS Safety Report 11393311 (Version 1)
Quarter: 2015Q3

REPORT INFORMATION
  Report Type: Spontaneous
  Country: US (occurrence: US)
  Receive Date: 20150818
  Receipt Date: 20150818
  Transmission Date: 20151125
  Serious: No
  Sender: FDA-Public Use
  Company Number: US-BAUSCH-SYM-2014-22914

PATIENT
  Age: 68 Year
  Sex: Female
  Weight: 63.56 kg

DRUGS (1)
  1. ZOVIRAX [Suspect]
     Active Substance: ACYCLOVIR
     Indication: HERPES VIRUS INFECTION
     Dosage: A COUPLE TIMES EACH DAY FOR 2 DAYS
     Route: 061
     Dates: start: 201406

REACTIONS (3)
  - Rash erythematous [Recovered/Resolved]
  - Application site discolouration [Unknown]
  - Skin irritation [Unknown]

NARRATIVE: CASE EVENT DATE: 201406
